FAERS Safety Report 10706304 (Version 1)
Quarter: 2014Q4

REPORT INFORMATION
  Report Type: Spontaneous
  Country: US (occurrence: None)
  Receive Date: 20141224
  Receipt Date: 20141224
  Transmission Date: 20150529
  Serious: Yes (Other)
  Sender: FDA-Public Use
  Company Number: PHEH2013US016878

PATIENT
  Age: 36 Year
  Sex: Male

DRUGS (1)
  1. CLOZARIL [Suspect]
     Active Substance: CLOZAPINE
     Route: 048
     Dates: start: 20130822

REACTIONS (7)
  - Haematocrit decreased [None]
  - Lymphocyte count increased [None]
  - Eosinophil count increased [None]
  - Granulocyte count decreased [None]
  - Haemoglobin decreased [None]
  - Leukopenia [None]
  - Neutrophil count decreased [None]

NARRATIVE: CASE EVENT DATE: 20131218
